APPROVED DRUG PRODUCT: PREDNICARBATE
Active Ingredient: PREDNICARBATE
Strength: 0.1%
Dosage Form/Route: OINTMENT;TOPICAL
Application: A077236 | Product #001
Applicant: FOUGERA PHARMACEUTICALS INC
Approved: Mar 9, 2007 | RLD: No | RS: Yes | Type: RX